FAERS Safety Report 9285361 (Version 1)
Quarter: 2013Q2

REPORT INFORMATION
  Report Type: Spontaneous
  Country: US (occurrence: None)
  Receive Date: 20130510
  Receipt Date: 20130510
  Transmission Date: 20140414
  Serious: Yes (Death)
  Sender: FDA-Public Use
  Company Number: None

PATIENT
  Sex: Male

DRUGS (5)
  1. METOPROLOL TARTRATE [Suspect]
     Dosage: 25MG BID ORAL
     Route: 048
     Dates: start: 20110831, end: 20130509
  2. VALCYTE [Concomitant]
  3. AZITHROMYCIN [Concomitant]
  4. TACROLIMUS [Concomitant]
  5. BACTRIM DS [Concomitant]

REACTIONS (1)
  - Death [None]
